FAERS Safety Report 5842587-8 (Version None)
Quarter: 2008Q3

REPORT INFORMATION
  Report Type: 
  Country: None (occurrence: None)
  Receive Date: 20080812
  Receipt Date: 20080806
  Transmission Date: 20090109
  Serious: Yes (Hospitalization, Disabling)
  Sender: FDA-Public Use
  Company Number: IE-MERCK-0808GBR00036

PATIENT
  Age: 60 Year
  Sex: Female

DRUGS (7)
  1. ZETIA [Suspect]
     Indication: BLOOD CHOLESTEROL INCREASED
     Route: 048
     Dates: start: 20080219, end: 20080704
  2. PSYLLIUM HUSK [Concomitant]
     Route: 065
  3. RABEPRAZOLE SODIUM [Concomitant]
     Route: 065
  4. ASPIRIN [Concomitant]
     Route: 065
  5. CETIRIZINE HYDROCHLORIDE [Concomitant]
     Route: 065
  6. DICLOFENAC SODIUM [Concomitant]
     Route: 065
  7. ESTRADIOL [Concomitant]
     Route: 065

REACTIONS (5)
  - ARTHRALGIA [None]
  - DISCOMFORT [None]
  - GAIT DISTURBANCE [None]
  - MUSCLE FATIGUE [None]
  - MUSCULOSKELETAL DISORDER [None]
